FAERS Safety Report 9696265 (Version 2)
Quarter: 2014Q1

REPORT INFORMATION
  Report Type: Spontaneous
  Country: US (occurrence: US)
  Receive Date: 20131119
  Receipt Date: 20140113
  Transmission Date: 20141002
  Serious: Yes (Death, Other)
  Sender: FDA-Public Use
  Company Number: US-PFIZER INC-2013327972

PATIENT
  Age: 74 Year
  Sex: Female
  Weight: 87.99 kg

DRUGS (20)
  1. XALKORI [Suspect]
     Indication: NON-SMALL CELL LUNG CANCER METASTATIC
     Dosage: 200 MG, 1X/DAY
     Route: 048
     Dates: start: 20131024, end: 20131115
  2. VICODIN [Concomitant]
     Dosage: 5 MG TABLET, 1/2-1 TABLET EVERY 4
  3. ONDANSETRON HYDROCHLORIDE [Concomitant]
     Dosage: 4 MG, ([1 TAB (S) Q 4 HRS AS NEEDED])
  4. PREDNISONE [Concomitant]
     Dosage: 20 MG, ALTERNATE DAY [2 TAB (S) EVERY OTHER DAY]
  5. TRICOR [Concomitant]
     Dosage: 145 MG, 1X/DAY
  6. HYDRALAZINE [Concomitant]
     Dosage: 25 MG, 3X/DAY
  7. NIFEDIPINE [Concomitant]
     Dosage: 90 MG, 2X/DAY
  8. LIPITOR [Concomitant]
     Dosage: 80 MG, 1X/DAY (AT BEDTIME)
  9. FUROSEMIDE [Concomitant]
     Dosage: 80 MG, 1X/DAY
  10. CALCITRIOL [Concomitant]
     Dosage: 0.25 UG, 1X/DAY
  11. CLOBETASOL 0.05% [Concomitant]
     Dosage: UNK
     Route: 061
  12. ALLOPURINOL [Concomitant]
     Dosage: 100 MG, DAILY
  13. METRONIDAZOLE [Concomitant]
     Dosage: 500 MG, 3X/DAY [1 TAB(S) EVERY 8 HOURS]
  14. TYLENOL [Concomitant]
     Dosage: 650 MG, AS NEEDED [325 MG TABLET 2 TAB(S) PRN]
  15. SYNTHROID [Concomitant]
     Dosage: 75 UG, 1X/DAY
  16. OMEPRAZOLE [Concomitant]
     Dosage: 40 MG, DAILY
  17. CYANOCOBALAMIN [Concomitant]
     Dosage: 1000 UG/ML, MONTHLY
  18. FOLIC ACID [Concomitant]
     Dosage: 1 MG, 1X/DAY
  19. HYDROCHLOROTHIAZIDE [Concomitant]
     Dosage: 25 MG, 1X/DAY
  20. CUMADIN [Concomitant]
     Dosage: 4 MG 6 DAYS AND 5 MG ON SUNDAY ONCE A DAY

REACTIONS (11)
  - Death [Fatal]
  - Haematochezia [Unknown]
  - Abdominal discomfort [Unknown]
  - Fatigue [Unknown]
  - Walking aid user [Unknown]
  - Oedema peripheral [Unknown]
  - Dysphonia [Unknown]
  - Dyspnoea exertional [Unknown]
  - Decreased appetite [Unknown]
  - Nausea [Unknown]
  - Musculoskeletal pain [Unknown]
